FAERS Safety Report 25064655 (Version 2)
Quarter: 2025Q1

REPORT INFORMATION
  Report Type: Spontaneous
  Country: US (occurrence: US)
  Receive Date: 20250311
  Receipt Date: 20250313
  Transmission Date: 20250408
  Serious: No
  Sender: AMGEN
  Company Number: US-AMGEN-USASP2025046376

PATIENT
  Age: 67 Year
  Sex: Male

DRUGS (1)
  1. TAVNEOS [Suspect]
     Active Substance: AVACOPAN
     Indication: Product used for unknown indication
     Dosage: 30 MILLIGRAM, BID (PATIENT OFF AND ON FOR NO REASON KNOWN)
     Route: 048
     Dates: start: 202311

REACTIONS (2)
  - Product use complaint [Unknown]
  - Intentional product misuse [Unknown]
